FAERS Safety Report 4324889-X (Version None)
Quarter: 2004Q1

REPORT INFORMATION
  Report Type: 
  Country: None (occurrence: None)
  Receive Date: 20040323
  Receipt Date: 20040122
  Transmission Date: 20041129
  Serious: No
  Sender: FDA-Public Use
  Company Number: M04-341-019

PATIENT
  Age: 69 Year
  Sex: Female
  Weight: 99 kg

DRUGS (3)
  1. VELCADE [Suspect]
     Indication: MULTIPLE MYELOMA
     Dates: start: 20040112, end: 20040112
  2. ANTIHYPERTENSIVES [Concomitant]
  3. THYROID HORMONES [Concomitant]

REACTIONS (1)
  - DIARRHOEA [None]
